FAERS Safety Report 5235549-5 (Version None)
Quarter: 2007Q1

REPORT INFORMATION
  Report Type: 
  Country: None (occurrence: None)
  Receive Date: 20070212
  Receipt Date: 20070129
  Transmission Date: 20070707
  Serious: Yes (Other)
  Sender: FDA-Public Use
  Company Number: US-ROCHE-475848

PATIENT
  Age: 56 Year
  Sex: Female

DRUGS (2)
  1. PEGASYS [Suspect]
     Indication: HEPATITIS C
     Dosage: COMPLETED 23 WEEKS OUT OF A PRESCRIBED 26 WEEKS.
     Route: 065
     Dates: start: 20060722, end: 20061216
  2. RIBAVIRIN [Suspect]
     Indication: HEPATITIS C
     Route: 065
     Dates: start: 20060722

REACTIONS (1)
  - NEOPLASM MALIGNANT [None]
